FAERS Safety Report 19746484 (Version 1)
Quarter: 2021Q3

REPORT INFORMATION
  Report Type: Spontaneous
  Country: JP (occurrence: JP)
  Receive Date: 20210825
  Receipt Date: 20210825
  Transmission Date: 20211014
  Serious: Yes (Hospitalization, Other)
  Sender: FDA-Public Use
  Company Number: JP-UCBSA-2021040205

PATIENT
  Age: 61 Year
  Sex: Male

DRUGS (3)
  1. LEVETIRACETAM. [Suspect]
     Active Substance: LEVETIRACETAM
     Dosage: 1000 MILLIGRAM / DAY
  2. LEVETIRACETAM. [Suspect]
     Active Substance: LEVETIRACETAM
     Indication: EPILEPSY
     Dosage: 500 MILLIGRAM PER DAY
  3. RIVAROXABAN [Concomitant]
     Active Substance: RIVAROXABAN
     Indication: CEREBRAL INFARCTION
     Dosage: 15 MILLIGRAM / DAY

REACTIONS (2)
  - Deafness [Recovered/Resolved]
  - Status epilepticus [Recovered/Resolved]
